FAERS Safety Report 7480391-8 (Version None)
Quarter: 2011Q2

REPORT INFORMATION
  Report Type: 
  Country: None (occurrence: None)
  Receive Date: 20110506
  Receipt Date: 20110425
  Transmission Date: 20111010
  Serious: Yes (Hospitalization)
  Sender: FDA-Public Use
  Company Number: 2011SP010721

PATIENT
  Age: 53 Year
  Sex: Male
  Weight: 60.4 kg

DRUGS (2)
  1. PEG-INTRON [Suspect]
     Indication: HEPATITIS C
     Dosage: 80 MCG;QW;SC
     Route: 058
     Dates: start: 20110121, end: 20110311
  2. REBETOL [Suspect]
     Indication: HEPATITIS C
     Dosage: 600 MG;QD;PO
     Route: 048
     Dates: start: 20110121, end: 20110321

REACTIONS (4)
  - TUBERCULOUS PLEURISY [None]
  - PLEURAL EFFUSION [None]
  - ASCITES [None]
  - PERITONEAL TUBERCULOSIS [None]
